FAERS Safety Report 9213109 (Version 1)
Quarter: 2013Q2

REPORT INFORMATION
  Report Type: Spontaneous
  Country: US (occurrence: US)
  Receive Date: 20130405
  Receipt Date: 20130405
  Transmission Date: 20140414
  Serious: No
  Sender: FDA-Public Use
  Company Number: US-PFIZER INC-2013103245

PATIENT
  Age: 43 Year
  Sex: Male
  Weight: 239 kg

DRUGS (3)
  1. VIAGRA [Suspect]
     Indication: SEXUAL DYSFUNCTION
     Dosage: 4-6 TABLETS, SINGLE
     Route: 048
     Dates: start: 20130327
  2. HERBAL SUPPLEMENT [Suspect]
     Dosage: UNK, SINGLE
     Dates: start: 20130326
  3. IBUPROFEN [Concomitant]
     Dosage: 250 MG, AS NEEDED

REACTIONS (5)
  - Incorrect dose administered [Unknown]
  - Penile discharge [Unknown]
  - Skin discolouration [Unknown]
  - Genital rash [Unknown]
  - Drug ineffective [Unknown]
